FAERS Safety Report 9633736 (Version 2)
Quarter: 2013Q4

REPORT INFORMATION
  Report Type: Spontaneous
  Country: US (occurrence: US)
  Receive Date: 20131021
  Receipt Date: 20131021
  Transmission Date: 20140711
  Serious: Yes (Death, Other)
  Sender: FDA-Public Use
  Company Number: US-PFIZER INC-2013212348

PATIENT
  Age: 74 Year
  Sex: Female

DRUGS (3)
  1. REVATIO [Suspect]
     Indication: PULMONARY HYPERTENSION
     Dosage: 20 MG, 3X/DAY
     Dates: start: 20101020
  2. REVATIO [Suspect]
     Indication: CARDIAC FAILURE CONGESTIVE
  3. REVATIO [Suspect]
     Indication: OBSTRUCTIVE AIRWAYS DISORDER

REACTIONS (2)
  - Traumatic intracranial haemorrhage [Fatal]
  - Fall [Unknown]
